FAERS Safety Report 5134750-9 (Version None)
Quarter: 2006Q4

REPORT INFORMATION
  Report Type: 
  Country: None (occurrence: None)
  Receive Date: 20061025
  Receipt Date: 20060919
  Transmission Date: 20070319
  Serious: Yes (Other)
  Sender: FDA-Public Use
  Company Number: FR-AMGEN-UK194248

PATIENT
  Age: 63 Year
  Sex: Male
  Weight: 72 kg

DRUGS (5)
  1. MIMPARA [Suspect]
     Indication: HYPERPARATHYROIDISM SECONDARY
     Route: 048
     Dates: start: 20060101
  2. ALLOPURINOL [Concomitant]
     Route: 048
  3. OMEPRAZOLE [Concomitant]
     Route: 048
  4. KAYEXALATE [Concomitant]
     Route: 048
  5. LEXOMIL [Concomitant]
     Route: 048

REACTIONS (3)
  - DRUG INTOLERANCE [None]
  - HYPOTENSION [None]
  - SENSORY DISTURBANCE [None]
